FAERS Safety Report 16298945 (Version 1)
Quarter: 2019Q2

REPORT INFORMATION
  Report Type: Spontaneous
  Country: US (occurrence: US)
  Receive Date: 20190405
  Receipt Date: 20190405
  Transmission Date: 20190711
  Serious: Yes (Other)
  Sender: FDA-Public Use
  Company Number: None

PATIENT
  Age: 32 Year
  Sex: Male
  Weight: 119.29 kg

DRUGS (1)
  1. ZONISAMIDE CAP 100MG [Suspect]
     Active Substance: ZONISAMIDE
     Indication: EPILEPSY
     Route: 048
     Dates: start: 20060804

REACTIONS (3)
  - Therapeutic product effect incomplete [None]
  - Product substitution issue [None]
  - Seizure [None]
